FAERS Safety Report 8288574-4 (Version None)
Quarter: 2012Q2

REPORT INFORMATION
  Report Type: 
  Country: None (occurrence: None)
  Receive Date: 20120416
  Receipt Date: 20120410
  Transmission Date: 20120825
  Serious: Yes (Disabling, Other)
  Sender: FDA-Public Use
  Company Number: US-MERCK-1203USA03364

PATIENT
  Age: 79 Year
  Sex: Female

DRUGS (3)
  1. FOSAMAX [Suspect]
     Indication: OSTEOPENIA
     Route: 048
     Dates: start: 20020101, end: 20100101
  2. FOSAMAX [Suspect]
     Indication: OSTEOPOROSIS PROPHYLAXIS
     Route: 048
     Dates: start: 20020101, end: 20100101
  3. FOSAMAX [Suspect]
     Route: 048

REACTIONS (6)
  - FEMUR FRACTURE [None]
  - TOOTH DISORDER [None]
  - OSTEOPOROSIS [None]
  - ARTHROPATHY [None]
  - STRESS FRACTURE [None]
  - LOW TURNOVER OSTEOPATHY [None]
